FAERS Safety Report 4268078-6 (Version None)
Quarter: 2004Q1

REPORT INFORMATION
  Report Type: 
  Country: None (occurrence: None)
  Receive Date: 20040109
  Receipt Date: 20040109
  Transmission Date: 20041129
  Serious: Yes (Disabling)
  Sender: FDA-Public Use
  Company Number: None

PATIENT
  Age: 59 Year
  Sex: Female
  Weight: 41.2773 kg

DRUGS (1)
  1. AVELOX [Suspect]
     Indication: SINUSITIS
     Dosage: 1 TAB/DAY ORAL
     Route: 048
     Dates: start: 20030912, end: 20031013

REACTIONS (16)
  - ABDOMINAL PAIN UPPER [None]
  - ARTHRALGIA [None]
  - BURNING SENSATION [None]
  - DIZZINESS [None]
  - DYSPNOEA [None]
  - HEART RATE INCREASED [None]
  - HEART RATE IRREGULAR [None]
  - JOINT SWELLING [None]
  - MENTAL DISORDER [None]
  - MOOD ALTERED [None]
  - MYALGIA [None]
  - NAUSEA [None]
  - OEDEMA PERIPHERAL [None]
  - PAIN [None]
  - TENDON DISORDER [None]
  - VISUAL DISTURBANCE [None]
